FAERS Safety Report 5502969-0 (Version None)
Quarter: 2007Q4

REPORT INFORMATION
  Report Type: 
  Country: None (occurrence: None)
  Receive Date: 20071031
  Receipt Date: 20070104
  Transmission Date: 20080405
  Serious: No
  Sender: FDA-Public Use
  Company Number: US-ASTRAZENECA-2006UW20439

PATIENT
  Sex: Male

DRUGS (3)
  1. ATENOLOL W/CHLORTALIDONE [Suspect]
     Route: 048
  2. LISINOPRIL [Concomitant]
     Route: 048
  3. COZAAR [Concomitant]

REACTIONS (2)
  - ASTHENIA [None]
  - CHEST PAIN [None]
